FAERS Safety Report 7134192-0 (Version None)
Quarter: 2010Q4

REPORT INFORMATION
  Report Type: 
  Country: None (occurrence: None)
  Receive Date: 20101117
  Receipt Date: 20101109
  Transmission Date: 20110411
  Serious: Yes (Hospitalization)
  Sender: FDA-Public Use
  Company Number: 2010MA004378

PATIENT
  Age: 62 Year
  Sex: Female

DRUGS (3)
  1. PROPYLTHIOURACIL [Suspect]
     Indication: HYPERTHYROIDISM
     Dosage: 100 MG;TID
  2. CON MEDS [Concomitant]
  3. PREV MEDS [Concomitant]

REACTIONS (5)
  - AGRANULOCYTOSIS [None]
  - OROPHARYNGEAL PAIN [None]
  - PURULENCE [None]
  - PYREXIA [None]
  - STAPHYLOCOCCUS TEST POSITIVE [None]
